FAERS Safety Report 20592023 (Version 1)
Quarter: 2022Q1

REPORT INFORMATION
  Report Type: Spontaneous
  Country: US (occurrence: US)
  Receive Date: 20220314
  Receipt Date: 20220314
  Transmission Date: 20220423
  Serious: No
  Sender: FDA-Public Use
  Company Number: US-ELI_LILLY_AND_COMPANY-US202203005359

PATIENT
  Age: 63 Year

DRUGS (3)
  1. TRULICITY [Suspect]
     Active Substance: DULAGLUTIDE
     Indication: Product used for unknown indication
     Dosage: 0.75 MG, UNKNOWN
     Route: 065
     Dates: start: 20220119
  2. METFORMIN [Concomitant]
     Active Substance: METFORMIN HYDROCHLORIDE
     Indication: Blood glucose abnormal
  3. GLIPIZIDE [Concomitant]
     Active Substance: GLIPIZIDE
     Indication: Blood glucose abnormal

REACTIONS (6)
  - Abdominal discomfort [Unknown]
  - Diarrhoea [Unknown]
  - Eructation [Unknown]
  - Flatulence [Unknown]
  - Abdominal pain upper [Unknown]
  - Constipation [Unknown]

NARRATIVE: CASE EVENT DATE: 20220101
